FAERS Safety Report 5052513-X (Version None)
Quarter: 2006Q3

REPORT INFORMATION
  Report Type: 
  Country: None (occurrence: None)
  Receive Date: 20060713
  Receipt Date: 20060713
  Transmission Date: 20061208
  Serious: Yes (Life-Threatening, Hospitalization)
  Sender: FDA-Public Use
  Company Number: None

PATIENT
  Sex: Female
  Weight: 81.6475 kg

DRUGS (1)
  1. ORTHO TRI-CYCLEN [Suspect]
     Indication: CONTRACEPTION
     Dosage: 1 DAY PO
     Route: 048
     Dates: start: 19980829, end: 19980830

REACTIONS (3)
  - ANAPHYLACTIC REACTION [None]
  - TYPE I HYPERSENSITIVITY [None]
  - URTICARIA [None]
